FAERS Safety Report 9126876 (Version 2)
Quarter: 2013Q2

REPORT INFORMATION
  Report Type: Spontaneous
  Country: US (occurrence: US)
  Receive Date: 20130228
  Receipt Date: 20130506
  Transmission Date: 20140414
  Serious: Yes (Other)
  Sender: FDA-Public Use
  Company Number: US-PFIZER INC-2013070699

PATIENT
  Age: 52 Year
  Sex: Female

DRUGS (11)
  1. XELJANZ [Suspect]
     Dosage: 5 MG, 2X/DAY
     Route: 048
     Dates: start: 20130124
  2. XELJANZ [Suspect]
     Dosage: 5 MG, 2X/DAY
     Route: 048
     Dates: start: 20130124
  3. CYMBALTA [Concomitant]
     Dosage: UNK
  4. PROTONIX [Concomitant]
     Dosage: UNK
  5. PLAQUENIL [Concomitant]
     Dosage: UNK
  6. COUMADINE [Concomitant]
     Dosage: UNK
  7. SOTALOL [Concomitant]
     Dosage: UNK
  8. LISINOPRIL [Concomitant]
     Dosage: UNK
  9. MAGNESIUM OXIDE [Concomitant]
     Dosage: UNK
  10. TRAMADOL HYDROCHLORIDE [Concomitant]
     Dosage: UNK
  11. TOPAMAX [Concomitant]
     Dosage: UNK

REACTIONS (8)
  - Kidney infection [Unknown]
  - Nasopharyngitis [Unknown]
  - Oropharyngeal pain [Unknown]
  - Cough [Unknown]
  - Rhinorrhoea [Unknown]
  - Chest pain [Unknown]
  - Abdominal pain upper [Unknown]
  - Hot flush [Unknown]
